FAERS Safety Report 11765620 (Version 1)
Quarter: 2015Q4

REPORT INFORMATION
  Report Type: Spontaneous
  Country: US (occurrence: US)
  Receive Date: 20151120
  Receipt Date: 20151120
  Transmission Date: 20160304
  Serious: No
  Sender: FDA-Public Use
  Company Number: US-ELI_LILLY_AND_COMPANY-US201406009251

PATIENT
  Sex: Female

DRUGS (9)
  1. FORTEO [Suspect]
     Active Substance: TERIPARATIDE
     Indication: OSTEOPOROSIS
     Dosage: UNK, QD
     Route: 065
     Dates: start: 20121226
  2. HYDROCODONE [Concomitant]
     Active Substance: HYDROCODONE
  3. SYNTHROID [Concomitant]
     Active Substance: LEVOTHYROXINE SODIUM
  4. KLONOPIN [Concomitant]
     Active Substance: CLONAZEPAM
  5. ROBAXIN [Concomitant]
     Active Substance: METHOCARBAMOL
  6. LEXAPRO [Concomitant]
     Active Substance: ESCITALOPRAM OXALATE
  7. VICODIN [Concomitant]
     Active Substance: ACETAMINOPHEN\HYDROCODONE BITARTRATE
  8. LYRICA [Concomitant]
     Active Substance: PREGABALIN
  9. SEROQUEL [Concomitant]
     Active Substance: QUETIAPINE FUMARATE

REACTIONS (4)
  - Spondylolisthesis [Unknown]
  - Headache [Unknown]
  - Drug dose omission [Unknown]
  - Pain in jaw [Unknown]
